FAERS Safety Report 13480015 (Version 1)
Quarter: 2017Q2

REPORT INFORMATION
  Report Type: Spontaneous
  Country: IT (occurrence: IT)
  Receive Date: 20170425
  Receipt Date: 20170425
  Transmission Date: 20170830
  Serious: Yes (Other)
  Sender: FDA-Public Use
  Company Number: PHHY2017IT059929

PATIENT
  Age: 60 Year
  Sex: Male

DRUGS (1)
  1. VOLTAREN [Suspect]
     Active Substance: DICLOFENAC SODIUM
     Indication: BACK PAIN
     Dosage: 1 DF, UNK
     Route: 030
     Dates: start: 20170323, end: 20170323

REACTIONS (5)
  - Face injury [Recovering/Resolving]
  - Hypersensitivity [Recovering/Resolving]
  - Pain [Recovering/Resolving]
  - Urticaria [Recovering/Resolving]
  - Syncope [Recovering/Resolving]

NARRATIVE: CASE EVENT DATE: 20170323
